FAERS Safety Report 17050284 (Version 3)
Quarter: 2021Q1

REPORT INFORMATION
  Report Type: Spontaneous
  Country: NL (occurrence: NL)
  Receive Date: 20191119
  Receipt Date: 20210114
  Transmission Date: 20210419
  Serious: Yes (Hospitalization)
  Sender: FDA-Public Use
  Company Number: NL-MYLANLABS-2019M1110841

PATIENT
  Sex: Female
  Weight: 3 kg

DRUGS (8)
  1. FYTOMENADION [Concomitant]
     Active Substance: PHYTONADIONE
     Dosage: 10 MG/ML: PARENT ROUTE: INTRAVENOUS/ORAL
     Route: 064
  2. FOLIUMZUUR [Concomitant]
     Active Substance: FOLIC ACID
     Dosage: 5 MG, ONCE DAILY (QD)
     Route: 064
  3. KEPPRA [Suspect]
     Active Substance: LEVETIRACETAM
     Dosage: 3 DOSAGE FORM, QD (500?250?250)
     Route: 064
  4. FERROFUMARAAT [Concomitant]
     Active Substance: FERROUS FUMARATE
     Indication: ANAEMIA
     Dosage: 200 MILLIGRAM
     Route: 064
  5. KEPPRA [Suspect]
     Active Substance: LEVETIRACETAM
     Indication: EPILEPSY
     Dosage: 3 IN 1 DAY,500?250?250
     Route: 064
     Dates: start: 2011, end: 20120330
  6. LAMOTRIGINE. [Suspect]
     Active Substance: LAMOTRIGINE
     Indication: EPILEPSY
     Dosage: 50 MILLIGRAM, QD (50 MG, 3X/DAY (TID))
     Route: 064
     Dates: start: 2011, end: 20120330
  7. LAMOTRIGINE. [Suspect]
     Active Substance: LAMOTRIGINE
     Dosage: 150 MILLIGRAM, QD (50?50?50)
     Route: 064
     Dates: start: 2011, end: 20120330
  8. VITAMIN K [Concomitant]
     Active Substance: PHYTONADIONE
     Dosage: UNK
     Route: 042
     Dates: start: 201203

REACTIONS (2)
  - Foetal exposure during pregnancy [Recovered/Resolved]
  - Hypoventilation [Recovered/Resolved]

NARRATIVE: CASE EVENT DATE: 2011
